FAERS Safety Report 23058955 (Version 1)
Quarter: 2023Q4

REPORT INFORMATION
  Report Type: Spontaneous
  Country: JP (occurrence: JP)
  Receive Date: 20231012
  Receipt Date: 20231012
  Transmission Date: 20240110
  Serious: Yes (Other)
  Sender: FDA-Public Use
  Company Number: JP-002147023-NVSJ2023JP014756

PATIENT

DRUGS (1)
  1. AFINITOR [Suspect]
     Active Substance: EVEROLIMUS
     Indication: Product used for unknown indication
     Dosage: 10-5 MG
     Route: 048
     Dates: start: 201909, end: 202001

REACTIONS (3)
  - Metastases to liver [Unknown]
  - Disease progression [Unknown]
  - Stomatitis [Unknown]

NARRATIVE: CASE EVENT DATE: 20191001
